FAERS Safety Report 24023100 (Version 2)
Quarter: 2024Q2

REPORT INFORMATION
  Report Type: Report from Study
  Country: PE (occurrence: PE)
  Receive Date: 20240627
  Receipt Date: 20240627
  Transmission Date: 20240716
  Serious: No
  Sender: FDA-Public Use
  Company Number: PE-ROCHE-3350599

PATIENT
  Age: 57 Year
  Sex: Male
  Weight: 74.0 kg

DRUGS (1)
  1. ALECTINIB [Suspect]
     Active Substance: ALECTINIB
     Indication: Lung cancer metastatic
     Route: 048
     Dates: start: 20220705

REACTIONS (1)
  - Dental caries [Recovered/Resolved]

NARRATIVE: CASE EVENT DATE: 20221005
